FAERS Safety Report 5425985-6 (Version None)
Quarter: 2007Q3

REPORT INFORMATION
  Report Type: 
  Country: None (occurrence: None)
  Receive Date: 20070827
  Receipt Date: 20070814
  Transmission Date: 20080115
  Serious: Yes (Other)
  Sender: FDA-Public Use
  Company Number: US-AMGEN-US180213

PATIENT
  Sex: Male
  Weight: 68.1 kg

DRUGS (6)
  1. ARANESP [Suspect]
     Indication: ANAEMIA OF MALIGNANT DISEASE
     Route: 058
     Dates: start: 20060421, end: 20060511
  2. NANDROLONE DECANOATE [Suspect]
     Route: 030
     Dates: start: 20060228, end: 20060415
  3. IRON [Concomitant]
     Dates: start: 20060201, end: 20060401
  4. PROSCAR [Concomitant]
     Dates: start: 20051101
  5. TEMODAR [Concomitant]
     Dates: start: 20051201, end: 20060122
  6. SPIRULINA [Concomitant]

REACTIONS (2)
  - APLASIA PURE RED CELL [None]
  - HAEMOGLOBIN DECREASED [None]
